FAERS Safety Report 5061256-8 (Version None)
Quarter: 2006Q3

REPORT INFORMATION
  Report Type: 
  Country: None (occurrence: None)
  Receive Date: 20060720
  Receipt Date: 20060707
  Transmission Date: 20061208
  Serious: Yes (Hospitalization)
  Sender: FDA-Public Use
  Company Number: 2006080223

PATIENT
  Age: 51 Year
  Sex: Male
  Weight: 55 kg

DRUGS (1)
  1. AZITHROMYCIN [Suspect]
     Indication: NASOPHARYNGITIS
     Dosage: 500 MG (UNKNOWN) ORAL
     Route: 048
     Dates: start: 20060605, end: 20060607

REACTIONS (3)
  - EOSINOPHILIA [None]
  - HEPATIC FUNCTION ABNORMAL [None]
  - MALAISE [None]
